FAERS Safety Report 23041103 (Version 2)
Quarter: 2023Q4

REPORT INFORMATION
  Report Type: Spontaneous
  Country: US (occurrence: US)
  Receive Date: 20231007
  Receipt Date: 20231026
  Transmission Date: 20240110
  Serious: No
  Sender: FDA-Public Use
  Company Number: US-MICRO LABS LIMITED-ML2023-05321

PATIENT
  Age: 51 Year
  Sex: Female
  Weight: 91.172 kg

DRUGS (1)
  1. CROMOLYN SODIUM [Suspect]
     Active Substance: CROMOLYN SODIUM
     Indication: Mast cell activation syndrome
     Dosage: STRENGTH: 100MG/5ML; DOSE: 8 AMPULES, 2-2 IN MORNING AND NIGHT, 4 TIMES A DAY
     Route: 048
     Dates: start: 20170305

REACTIONS (10)
  - Weight decreased [Unknown]
  - Lacrimation increased [Unknown]
  - Blood pressure increased [Unknown]
  - Hyperhidrosis [Unknown]
  - Rash [Unknown]
  - Nausea [Unknown]
  - Malaise [Unknown]
  - Flushing [Unknown]
  - Product dose omission issue [Unknown]
  - Incorrect dosage administered [Unknown]
